FAERS Safety Report 8002738-6 (Version None)
Quarter: 2011Q4

REPORT INFORMATION
  Report Type: 
  Country: None (occurrence: None)
  Receive Date: 20111222
  Receipt Date: 20111209
  Transmission Date: 20120403
  Serious: Yes (Death)
  Sender: FDA-Public Use
  Company Number: ES-WATSON-2011-01013

PATIENT
  Age: 12 Year
  Sex: Female

DRUGS (2)
  1. IBUPROFEN [Suspect]
     Indication: PRODUCT USED FOR UNKNOWN INDICATION
     Dosage: UNK
  2. PENICILLIN G POTASSIUM [Suspect]
     Indication: BRONCHITIS
     Dosage: UNK

REACTIONS (3)
  - DISTRIBUTIVE SHOCK [None]
  - TOXIC EPIDERMAL NECROLYSIS [None]
  - SEPSIS [None]
